FAERS Safety Report 10609840 (Version 5)
Quarter: 2015Q2

REPORT INFORMATION
  Report Type: Report from Study
  Country: CA (occurrence: CA)
  Receive Date: 20141126
  Receipt Date: 20150619
  Transmission Date: 20150821
  Serious: Yes (Other)
  Sender: FDA-Public Use
  Company Number: PHHY2013CA009302

PATIENT
  Sex: Male

DRUGS (2)
  1. ASACOL [Concomitant]
     Active Substance: MESALAMINE
     Indication: COLITIS
     Dosage: 2400 MG, QD
     Route: 065
  2. GLEEVEC [Suspect]
     Active Substance: IMATINIB MESYLATE
     Indication: CHRONIC MYELOID LEUKAEMIA
     Dosage: 400 MG, QD
     Route: 048
     Dates: start: 201202

REACTIONS (18)
  - Fatigue [Not Recovered/Not Resolved]
  - Dizziness [Not Recovered/Not Resolved]
  - Immunodeficiency [Unknown]
  - Abnormal dreams [Unknown]
  - Influenza like illness [Not Recovered/Not Resolved]
  - Myalgia [Unknown]
  - Nausea [Unknown]
  - Dyspnoea [Unknown]
  - Nasopharyngitis [Unknown]
  - Sinus headache [Unknown]
  - Gene mutation [Recovering/Resolving]
  - Drug ineffective [Unknown]
  - Blood zinc decreased [Unknown]
  - Haemoglobin decreased [Unknown]
  - Colitis [Recovering/Resolving]
  - Pyrexia [Unknown]
  - Viral infection [Unknown]
  - Sleep disorder [Unknown]
